FAERS Safety Report 8368477-7 (Version None)
Quarter: 2012Q2

REPORT INFORMATION
  Report Type: 
  Country: None (occurrence: None)
  Receive Date: 20120518
  Receipt Date: 20120511
  Transmission Date: 20120825
  Serious: Yes (Other)
  Sender: FDA-Public Use
  Company Number: GR-AMGEN-GRCSP2012022719

PATIENT
  Age: 47 Year
  Sex: Female

DRUGS (1)
  1. PROLIA [Suspect]
     Indication: METASTASES TO BONE
     Dosage: 60 MG, Q2MO
     Dates: start: 20110701, end: 20120301

REACTIONS (2)
  - OSTEONECROSIS OF JAW [None]
  - PAIN IN JAW [None]
